FAERS Safety Report 9459955 (Version 1)
Quarter: 2013Q3

REPORT INFORMATION
  Report Type: Spontaneous
  Country: US (occurrence: None)
  Receive Date: 20130813
  Receipt Date: 20130813
  Transmission Date: 20140515
  Serious: Yes (Death)
  Sender: FDA-Public Use
  Company Number: None

PATIENT
  Age: 63 Year
  Sex: Female
  Weight: 124.74 kg

DRUGS (2)
  1. AMIODARONE [Suspect]
     Indication: ATRIAL FIBRILLATION
     Dosage: 200 MG 2 PER DAY ORAL
     Route: 048
     Dates: start: 20130104, end: 20130527
  2. AMIODARONE [Suspect]
     Indication: ATRIAL FIBRILLATION
     Dosage: 200 MG 1 PER DAY ORAL
     Route: 048
     Dates: start: 20130527, end: 20130624

REACTIONS (4)
  - Dyspnoea [None]
  - Interstitial lung disease [None]
  - Loss of consciousness [None]
  - Resuscitation [None]
